FAERS Safety Report 7056709-7 (Version None)
Quarter: 2010Q4

REPORT INFORMATION
  Report Type: 
  Country: None (occurrence: None)
  Receive Date: 20101019
  Receipt Date: 20101011
  Transmission Date: 20110411
  Serious: Yes (Death)
  Sender: FDA-Public Use
  Company Number: 2010EU005135

PATIENT
  Age: 70 Year
  Sex: Female
  Weight: 96 kg

DRUGS (6)
  1. SOLIFENACIN SUCCINATE (VESICARE) [Suspect]
     Indication: HYPERTONIC BLADDER
     Dosage: 2 DF, UID/QD, ORAL
     Route: 048
     Dates: start: 20100924, end: 20100925
  2. ASPIRIN [Concomitant]
  3. METOPROLOL TARTRATE [Concomitant]
  4. BENZYLHYDROCHLOROTHIAZIDE (BENZYLHYDROCHLOROTHIAZIDE ) [Concomitant]
  5. TRANDOLAPRIL [Concomitant]
  6. TRIMETAZIDINE DIHYDROCHLORIDE (TRIMETAZIDINE HYDROCHLORIDE) [Concomitant]

REACTIONS (5)
  - CARDIOPULMONARY FAILURE [None]
  - CHOLELITHIASIS [None]
  - ENDOTOXIC SHOCK [None]
  - PANCREATITIS NECROTISING [None]
  - PERITONITIS [None]
